FAERS Safety Report 6942285-3 (Version None)
Quarter: 2010Q3

REPORT INFORMATION
  Report Type: 
  Country: None (occurrence: None)
  Receive Date: 20100823
  Receipt Date: 20100806
  Transmission Date: 20110219
  Serious: Yes (Hospitalization)
  Sender: FDA-Public Use
  Company Number: 2010003332

PATIENT
  Age: 46 Year
  Sex: Female

DRUGS (2)
  1. ERLOTINIB HYDROCHLORIDE [Suspect]
     Indication: BREAST CANCER
     Dosage: 150 MG, QD, ORAL
     Route: 048
     Dates: start: 20100101, end: 20100413
  2. BENDAMUSTINE (BENDAMUSTINE) [Suspect]
     Indication: BREAST CANCER
     Dosage: 234 MG, INTRAVENOUS
     Route: 042
     Dates: start: 20091228, end: 20100325

REACTIONS (14)
  - ANTIBIOTIC RESISTANT STAPHYLOCOCCUS TEST POSITIVE [None]
  - ATRIAL SEPTAL DEFECT [None]
  - BLOOD CALCIUM DECREASED [None]
  - BLOOD CHLORIDE DECREASED [None]
  - BLOOD POTASSIUM INCREASED [None]
  - CANDIDIASIS [None]
  - HAEMOGLOBIN DECREASED [None]
  - INAPPROPRIATE ANTIDIURETIC HORMONE SECRETION [None]
  - KLEBSIELLA INFECTION [None]
  - LETHARGY [None]
  - LYMPHOPENIA [None]
  - METASTASES TO CENTRAL NERVOUS SYSTEM [None]
  - OXYGEN SATURATION DECREASED [None]
  - TROPONIN INCREASED [None]
